FAERS Safety Report 5759213-9 (Version None)
Quarter: 2008Q2

REPORT INFORMATION
  Report Type: 
  Country: None (occurrence: None)
  Receive Date: 20080604
  Receipt Date: 20080523
  Transmission Date: 20081010
  Serious: Yes (Death, Other)
  Sender: FDA-Public Use
  Company Number: US-PFIZER INC-2008045113

PATIENT
  Sex: Female

DRUGS (12)
  1. DILANTIN [Suspect]
     Indication: CONVULSION
     Dates: end: 20080208
  2. DILANTIN [Suspect]
     Indication: STATUS EPILEPTICUS
  3. PHENYTOIN [Suspect]
     Indication: CONVULSION
     Route: 042
  4. PHENYTOIN [Suspect]
     Indication: STATUS EPILEPTICUS
  5. ASPIRIN [Concomitant]
  6. CLONIDINE [Concomitant]
  7. RANITIDINE [Concomitant]
  8. DEMEROL [Concomitant]
  9. HYDRALAZINE HCL [Concomitant]
  10. LANTUS [Concomitant]
  11. HUMULIN R [Concomitant]
  12. ISOSORBIDE DINITRATE [Concomitant]

REACTIONS (11)
  - ACUTE RESPIRATORY FAILURE [None]
  - BLOOD BILIRUBIN INCREASED [None]
  - CLOSTRIDIAL INFECTION [None]
  - COMA [None]
  - DYSPNOEA [None]
  - MALNUTRITION [None]
  - SEPTIC SHOCK [None]
  - STAPHYLOCOCCAL SEPSIS [None]
  - TOXIC EPIDERMAL NECROLYSIS [None]
  - URINARY TRACT INFECTION [None]
  - VENTRICULAR TACHYCARDIA [None]
